FAERS Safety Report 6154604-9 (Version None)
Quarter: 2009Q2

REPORT INFORMATION
  Report Type: 
  Country: None (occurrence: None)
  Receive Date: 20090414
  Receipt Date: 20090331
  Transmission Date: 20091009
  Serious: Yes (Death)
  Sender: FDA-Public Use
  Company Number: JP-ROCHE-625515

PATIENT
  Sex: Male

DRUGS (8)
  1. MYCOPHENOLATE MOFETIL [Suspect]
     Indication: GRAFT VERSUS HOST DISEASE
     Route: 048
     Dates: start: 20070507, end: 20070516
  2. PROGRAF [Suspect]
     Indication: GRAFT VERSUS HOST DISEASE
     Dosage: NOTE: 1-1.5 MG
     Route: 048
     Dates: start: 20070326, end: 20070516
  3. PREDONINE [Concomitant]
     Dosage: NOTE: 10-20 MG
     Route: 048
     Dates: start: 20070421, end: 20070512
  4. OMEPRAL [Concomitant]
     Route: 041
     Dates: start: 20070316, end: 20070516
  5. MULTIVITAMIN NOS [Concomitant]
     Dosage: DRUG NAME: DAIMEDIN_MULTI
     Route: 041
     Dates: start: 20070329, end: 20070517
  6. ZINC SULFATE [Concomitant]
     Dosage: DRUG NAME: VOLVIX
     Route: 041
     Dates: start: 20070329, end: 20070517
  7. LASIX [Concomitant]
     Dosage: NOTE: 20-120 MG
     Route: 041
     Dates: start: 20070329, end: 20070517
  8. URSO 250 [Concomitant]
     Route: 048
     Dates: start: 20070509, end: 20070517

REACTIONS (3)
  - BLOOD CREATININE INCREASED [None]
  - BLOOD UREA INCREASED [None]
  - DEATH [None]
